FAERS Safety Report 4837904-1 (Version None)
Quarter: 2005Q4

REPORT INFORMATION
  Report Type: 
  Country: None (occurrence: None)
  Receive Date: 20051123
  Receipt Date: 20051123
  Transmission Date: 20060501
  Serious: Yes (Hospitalization)
  Sender: FDA-Public Use
  Company Number: None

PATIENT
  Age: 79 Year
  Sex: Male
  Weight: 74.3899 kg

DRUGS (2)
  1. LEVAQUIN [Suspect]
     Indication: CELLULITIS
     Dosage: DAILY
  2. LEVAQUIN [Suspect]
     Indication: URINARY TRACT INFECTION
     Dosage: DAILY

REACTIONS (1)
  - TENDON RUPTURE [None]
